FAERS Safety Report 5465755-6 (Version None)
Quarter: 2007Q3

REPORT INFORMATION
  Report Type: 
  Country: None (occurrence: None)
  Receive Date: 20070924
  Receipt Date: 20070918
  Transmission Date: 20080115
  Serious: Yes (Other)
  Sender: FDA-Public Use
  Company Number: A0683397A

PATIENT
  Age: 48 Year
  Sex: Male

DRUGS (5)
  1. AVANDIA [Suspect]
     Indication: DRUG USE FOR UNKNOWN INDICATION
     Dosage: 2MG PER DAY
  2. GLUCONORM [Suspect]
     Indication: DRUG USE FOR UNKNOWN INDICATION
     Dosage: 4MG THREE TIMES PER DAY
  3. ASPIRIN [Concomitant]
  4. LIPITOR [Concomitant]
  5. RAMIPRIL [Concomitant]

REACTIONS (2)
  - CHEST PAIN [None]
  - MYOCARDIAL ISCHAEMIA [None]
